FAERS Safety Report 8053470 (Version 4)
Quarter: 2014Q2

REPORT INFORMATION
  Report Type: Report from Study
  Country: JP (occurrence: JP)
  Receive Date: 20110725
  Receipt Date: 20140617
  Transmission Date: 20141212
  Serious: Yes (Other)
  Sender: FDA-Public Use
  Company Number: PHHY2011JP63296

PATIENT
  Age: 55 Year
  Sex: Female

DRUGS (27)
  1. LEPONEX / CLOZARIL [Suspect]
     Indication: SCHIZOPHRENIA
     Dosage: 12.5 MG
     Route: 048
     Dates: start: 20110628, end: 20110628
  2. LEPONEX / CLOZARIL [Suspect]
     Dosage: 25 MG
     Route: 048
     Dates: start: 20110629, end: 20110629
  3. LEPONEX / CLOZARIL [Suspect]
     Dosage: 50 MG
     Route: 048
     Dates: start: 20110630, end: 20110701
  4. LEPONEX / CLOZARIL [Suspect]
     Dosage: 75 MG
     Dates: start: 20110702, end: 20110702
  5. LEPONEX / CLOZARIL [Suspect]
     Dosage: 100 MG
     Dates: start: 20110703, end: 20110704
  6. LEPONEX / CLOZARIL [Suspect]
     Dosage: 125 MG
     Route: 048
     Dates: start: 20110705, end: 20110708
  7. LEPONEX / CLOZARIL [Suspect]
     Dosage: 150 MG
     Route: 048
     Dates: start: 20110709, end: 20110711
  8. LEPONEX / CLOZARIL [Suspect]
     Dosage: 175 MG
     Dates: start: 20110712, end: 20110720
  9. LEPONEX / CLOZARIL [Suspect]
     Dosage: 200 MG
     Route: 048
     Dates: start: 20110721, end: 20110724
  10. LEPONEX / CLOZARIL [Suspect]
     Dosage: 225 MG,
     Route: 048
     Dates: start: 20110725, end: 20110725
  11. LEPONEX / CLOZARIL [Suspect]
     Dosage: 250 MG, DAILY
     Route: 048
     Dates: start: 20110726, end: 20110731
  12. LEPONEX / CLOZARIL [Suspect]
     Dosage: 275 MG,
     Route: 048
     Dates: start: 20110801, end: 20110801
  13. LEPONEX / CLOZARIL [Suspect]
     Dosage: 300 MG, DAILY
     Route: 048
     Dates: start: 20110802, end: 20110807
  14. LEPONEX / CLOZARIL [Suspect]
     Dosage: 350 MG
     Dates: start: 20110808, end: 20110808
  15. LEPONEX / CLOZARIL [Suspect]
     Dosage: 400 MG, DAILY
     Route: 048
     Dates: start: 20110809, end: 20110828
  16. LEPONEX / CLOZARIL [Suspect]
     Dosage: 425 MG
     Route: 048
     Dates: start: 20110829, end: 20110829
  17. LEPONEX / CLOZARIL [Suspect]
     Dosage: 450 MG, DAILY
     Route: 048
     Dates: start: 20110830, end: 20110915
  18. LEPONEX / CLOZARIL [Suspect]
     Dosage: 475 MG
     Route: 048
     Dates: start: 20110916, end: 20110916
  19. LEPONEX / CLOZARIL [Suspect]
     Dosage: 500 MG
     Dates: start: 20110917
  20. LEPONEX / CLOZARIL [Suspect]
     Dosage: 300 MG
     Dates: start: 2011
  21. LEPONEX / CLOZARIL [Suspect]
     Dosage: 450 MG
     Dates: start: 2011
  22. LEPONEX / CLOZARIL [Suspect]
     Dosage: 600 MG, DAILY
  23. LEPONEX / CLOZARIL [Suspect]
     Dosage: 300 MG, UNK
     Route: 048
  24. LEPONEX / CLOZARIL [Suspect]
     Dosage: 250 MG
     Route: 048
     Dates: end: 20120323
  25. ABILIFY [Suspect]
     Dosage: 24 MG, DAILY
  26. ARIPIPRAZOLE [Concomitant]
     Dosage: 24 MG
     Route: 048
  27. OLANZAPINE [Concomitant]
     Dosage: 10 MG DAILY
     Route: 048

REACTIONS (11)
  - Stupor [Not Recovered/Not Resolved]
  - Schizophrenia [Unknown]
  - Upper respiratory tract inflammation [Unknown]
  - Pharyngeal erythema [Unknown]
  - Pneumonia aspiration [Unknown]
  - Pyrexia [Recovered/Resolved]
  - Loss of consciousness [Recovered/Resolved]
  - C-reactive protein increased [Recovering/Resolving]
  - Feeling abnormal [Unknown]
  - Salivary hypersecretion [Unknown]
  - White blood cell count increased [Not Recovered/Not Resolved]
